FAERS Safety Report 6706672-0 (Version None)
Quarter: 2010Q2

REPORT INFORMATION
  Report Type: 
  Country: None (occurrence: None)
  Receive Date: 20100503
  Receipt Date: 20100401
  Transmission Date: 20101027
  Serious: No
  Sender: FDA-Public Use
  Company Number: US-BAYER-201013894BCC

PATIENT
  Age: 39 Year
  Sex: Male
  Weight: 81 kg

DRUGS (5)
  1. ALEVE [Suspect]
     Indication: BACK PAIN
     Route: 048
     Dates: start: 20100329
  2. ALEVE [Suspect]
     Dosage: TOTAL DAILY DOSE: 220 MG  UNIT DOSE: 220 MG
     Route: 048
     Dates: start: 20100331
  3. PRESCRIPTION NAPROXEN [Concomitant]
     Route: 065
  4. ADVIL [Concomitant]
     Route: 065
  5. TYLENOL PM [Concomitant]
     Route: 065
     Dates: start: 20100331

REACTIONS (4)
  - HYPERAESTHESIA [None]
  - HYPERSENSITIVITY [None]
  - SKIN NODULE [None]
  - SWELLING FACE [None]
